FAERS Safety Report 5876043-8 (Version None)
Quarter: 2008Q3

REPORT INFORMATION
  Report Type: 
  Country: None (occurrence: None)
  Receive Date: 20080910
  Receipt Date: 20080904
  Transmission Date: 20090109
  Serious: Yes (Hospitalization)
  Sender: FDA-Public Use
  Company Number: NL-TEVA-172429ISR

PATIENT
  Sex: Female
  Weight: 63 kg

DRUGS (4)
  1. FLUOROURACIL [Suspect]
     Indication: BREAST CANCER
     Route: 042
     Dates: start: 20080130
  2. EPIRUBICIN [Concomitant]
     Indication: BREAST CANCER
     Route: 042
     Dates: start: 20080130
  3. CYCLOPHOSPHAMIDE [Concomitant]
     Indication: BREAST CANCER
     Route: 042
     Dates: start: 20080130
  4. METFORMIN HCL [Concomitant]
     Indication: BREAST CANCER

REACTIONS (3)
  - HEPATIC STEATOSIS [None]
  - HYPERTRIGLYCERIDAEMIA [None]
  - PANCREATITIS ACUTE [None]
